FAERS Safety Report 8477144-0 (Version None)
Quarter: 2012Q2

REPORT INFORMATION
  Report Type: 
  Country: None (occurrence: None)
  Receive Date: 20120629
  Receipt Date: 20120626
  Transmission Date: 20120825
  Serious: No
  Sender: FDA-Public Use
  Company Number: US-PFIZER INC-2012132649

PATIENT
  Sex: Male
  Weight: 84 kg

DRUGS (3)
  1. FLECTOR [Suspect]
     Indication: PAIN
     Dosage: UNK, 1X/DAY
     Route: 061
     Dates: start: 20120426, end: 20120531
  2. ASPIRIN [Concomitant]
     Dosage: 81 MG, UNK
  3. ALLOPURINOL [Concomitant]
     Indication: GOUT
     Dosage: UNK

REACTIONS (1)
  - DRUG INEFFECTIVE [None]
